FAERS Safety Report 10592343 (Version 1)
Quarter: 2014Q4

REPORT INFORMATION
  Report Type: Spontaneous
  Country: US (occurrence: None)
  Receive Date: 20141117
  Receipt Date: 20141117
  Transmission Date: 20150529
  Serious: Yes (Hospitalization, Other)
  Sender: FDA-Public Use
  Company Number: ADR-2014-02129

PATIENT
  Age: 49 Year
  Sex: Female

DRUGS (5)
  1. TIZANIDINE (TIZANIDINE) [Suspect]
     Active Substance: TIZANIDINE
     Indication: PAIN
  2. BENZODIAZEPINES [Suspect]
     Active Substance: BENZODIAZEPINE
     Dosage: IV OPIOIDS
     Route: 048
  3. TIZANIDINE (TIZANIDINE) [Suspect]
     Active Substance: TIZANIDINE
     Indication: MUSCLE SPASMS
  4. BACLOFEN. [Suspect]
     Active Substance: BACLOFEN
  5. GABAPENTIN. [Suspect]
     Active Substance: GABAPENTIN
     Dosage: IV OPIOIDS
     Route: 048

REACTIONS (4)
  - Pain in extremity [None]
  - Muscle contractions involuntary [None]
  - Neck pain [None]
  - Haemodynamic instability [None]

NARRATIVE: CASE EVENT DATE: 20140101
